FAERS Safety Report 20349137 (Version 1)
Quarter: 2022Q1

REPORT INFORMATION
  Report Type: Other
  Country: US (occurrence: None)
  Receive Date: 20220119
  Receipt Date: 20220119
  Transmission Date: 20220423
  Serious: Yes (Hospitalization, Other)
  Sender: FDA-Public Use
  Company Number: US-ROCHE-3000721

PATIENT
  Sex: Female
  Weight: 94.886 kg

DRUGS (3)
  1. OCREVUS [Suspect]
     Active Substance: OCRELIZUMAB
     Indication: Relapsing multiple sclerosis
     Dosage: DATE OF TREATMENT: 13/SEP/2021 (600MG)
     Route: 042
     Dates: start: 202009
  2. IUD NOS [Suspect]
     Active Substance: COPPER OR LEVONORGESTREL
     Indication: Product used for unknown indication
     Route: 015
  3. KEPPRA [Concomitant]
     Active Substance: LEVETIRACETAM
     Indication: Seizure

REACTIONS (3)
  - Iron deficiency [Recovered/Resolved]
  - Cholelithiasis [Not Recovered/Not Resolved]
  - COVID-19 [Recovered/Resolved]

NARRATIVE: CASE EVENT DATE: 20210101
